FAERS Safety Report 8422806-4 (Version None)
Quarter: 2012Q2

REPORT INFORMATION
  Report Type: 
  Country: None (occurrence: None)
  Receive Date: 20120608
  Receipt Date: 20120604
  Transmission Date: 20120825
  Serious: Yes (Hospitalization, Disabling, Other)
  Sender: FDA-Public Use
  Company Number: US-MERCK-1203USA03329

PATIENT
  Age: 62 Year
  Sex: Female
  Weight: 73 kg

DRUGS (7)
  1. ALENDRONATE SODIUM [Suspect]
     Indication: OSTEOPOROSIS
     Route: 048
     Dates: start: 20000501, end: 20110301
  2. ALENDRONATE SODIUM [Suspect]
     Indication: OSTEOPENIA
     Route: 048
     Dates: start: 20000501, end: 20110301
  3. FOSAMAX [Suspect]
     Indication: BONE LOSS
     Route: 048
     Dates: start: 19960601, end: 20110101
  4. FOSAMAX [Suspect]
     Route: 048
  5. FOSAMAX [Suspect]
     Route: 048
  6. HORMONES (UNSPECIFIED) [Concomitant]
     Route: 065
     Dates: start: 19710101, end: 20020101
  7. FOSAMAX [Suspect]
     Route: 048

REACTIONS (32)
  - EXOSTOSIS [None]
  - HYPERCHOLESTEROLAEMIA [None]
  - INTERVERTEBRAL DISC INJURY [None]
  - NAUSEA [None]
  - DYSPNOEA [None]
  - CELLULITIS [None]
  - FRACTURE [None]
  - TOOTH DISORDER [None]
  - FOOT FRACTURE [None]
  - CATARACT [None]
  - DIVERTICULUM [None]
  - FEMUR FRACTURE [None]
  - BONE DENSITY DECREASED [None]
  - ADVERSE EVENT [None]
  - PAIN [None]
  - RADICULOPATHY [None]
  - INTERVERTEBRAL DISC DEGENERATION [None]
  - APPENDIX DISORDER [None]
  - FALLOPIAN TUBE DISORDER [None]
  - OVERDOSE [None]
  - OSTEOPOROSIS [None]
  - HIATUS HERNIA [None]
  - GASTROOESOPHAGEAL REFLUX DISEASE [None]
  - BURSITIS [None]
  - DIVERTICULITIS [None]
  - BASAL CELL CARCINOMA [None]
  - HYPERTENSION [None]
  - FOOT DEFORMITY [None]
  - GLAUCOMA [None]
  - INTERVERTEBRAL DISC DISORDER [None]
  - MUSCLE SPASMS [None]
  - STRESS FRACTURE [None]
